FAERS Safety Report 11048803 (Version 1)
Quarter: 2015Q2

REPORT INFORMATION
  Report Type: Spontaneous
  Country: CN (occurrence: CN)
  Receive Date: 20150420
  Receipt Date: 20150420
  Transmission Date: 20150821
  Serious: Yes (Hospitalization)
  Sender: FDA-Public Use
  Company Number: CN-JNJFOC-20150409498

PATIENT
  Age: 8 Month
  Sex: Male
  Weight: 10 kg

DRUGS (5)
  1. XIAOER GANMAO [Suspect]
     Active Substance: HERBALS
     Indication: PYREXIA
     Route: 048
     Dates: start: 20141010, end: 20141011
  2. XIAOER GANMAO [Suspect]
     Active Substance: HERBALS
     Indication: NASOPHARYNGITIS
     Route: 048
     Dates: start: 20141010, end: 20141011
  3. TYLENOL [Suspect]
     Active Substance: ACETAMINOPHEN
     Indication: NASOPHARYNGITIS
     Route: 048
     Dates: start: 20141010, end: 20141011
  4. TYLENOL [Suspect]
     Active Substance: ACETAMINOPHEN
     Indication: PYREXIA
     Route: 048
     Dates: start: 20141010, end: 20141011
  5. XIAOER GANMAO [Suspect]
     Active Substance: HERBALS
     Indication: UPPER RESPIRATORY TRACT INFECTION
     Route: 048
     Dates: start: 20141010, end: 20141011

REACTIONS (2)
  - Hepatic enzyme increased [Recovering/Resolving]
  - Heart rate increased [None]

NARRATIVE: CASE EVENT DATE: 20141011
